FAERS Safety Report 19147102 (Version 3)
Quarter: 2022Q1

REPORT INFORMATION
  Report Type: Spontaneous
  Country: US (occurrence: None)
  Receive Date: 20210416
  Receipt Date: 20220203
  Transmission Date: 20220423
  Serious: Yes (Hospitalization, Other)
  Sender: FDA-Public Use
  Company Number: 2019SE09893

PATIENT
  Age: 52 Year
  Sex: Male
  Weight: 122.5 kg

DRUGS (26)
  1. NEXIUM [Suspect]
     Active Substance: ESOMEPRAZOLE MAGNESIUM
     Indication: Gastrooesophageal reflux disease
     Dosage: FOR VARIOUS DATES AND YEARS
     Route: 048
  2. NEXIUM [Suspect]
     Active Substance: ESOMEPRAZOLE MAGNESIUM
     Indication: Gastrooesophageal reflux disease
     Route: 048
     Dates: start: 20111019
  3. NEXIUM [Suspect]
     Active Substance: ESOMEPRAZOLE MAGNESIUM
     Indication: Gastrooesophageal reflux disease
     Dosage: GENERIC
     Route: 048
  4. ENDOCET [Concomitant]
     Active Substance: ACETAMINOPHEN\OXYCODONE HYDROCHLORIDE
  5. AMOXICILLIN [Concomitant]
     Active Substance: AMOXICILLIN
  6. OXYCODONE [Concomitant]
     Active Substance: OXYCODONE
  7. HEPARIN [Concomitant]
     Active Substance: HEPARIN SODIUM
  8. VITAMIN D [Concomitant]
     Active Substance: VITAMIN D NOS
  9. GABAPENTIN [Concomitant]
     Active Substance: GABAPENTIN
  10. MORPHINE SULFATE [Concomitant]
     Active Substance: MORPHINE SULFATE
  11. ATORVASTATIN CALCIUM [Concomitant]
     Active Substance: ATORVASTATIN CALCIUM
  12. ASPIRIN [Concomitant]
     Active Substance: ASPIRIN
     Indication: Myocardial infarction
     Dates: start: 2020
  13. LYRICA [Concomitant]
     Active Substance: PREGABALIN
     Dates: start: 20170809
  14. TIZANIDINE [Concomitant]
     Active Substance: TIZANIDINE
     Dates: start: 20170815
  15. LANTUS [Concomitant]
     Active Substance: INSULIN GLARGINE
     Dates: start: 20170405
  16. METOPROLOL [Concomitant]
     Active Substance: METOPROLOL
     Dates: start: 20160804
  17. ROPINIROLE [Concomitant]
     Active Substance: ROPINIROLE
     Dates: start: 20160504
  18. LORATADINE [Concomitant]
     Active Substance: LORATADINE
     Dates: start: 20140909
  19. SERTRALINE [Concomitant]
     Active Substance: SERTRALINE HYDROCHLORIDE
     Dates: start: 20140902
  20. CLONIDINE [Concomitant]
     Active Substance: CLONIDINE
     Dates: start: 20140902
  21. ONDANSETRON [Concomitant]
     Active Substance: ONDANSETRON
     Dates: start: 20140902
  22. CELECOXIB [Concomitant]
     Active Substance: CELECOXIB
     Dates: start: 20140902
  23. VANCOMYCIN [Concomitant]
     Active Substance: VANCOMYCIN
     Dates: start: 20140902
  24. NALOXONE [Concomitant]
     Active Substance: NALOXONE
     Dates: start: 20170104
  25. CEFEPIME HYDROCHLORIDE\TAZOBACTAM SODIUM [Concomitant]
     Active Substance: CEFEPIME HYDROCHLORIDE\TAZOBACTAM SODIUM
     Dates: start: 20170104
  26. LEVOFLOXACIN [Concomitant]
     Active Substance: LEVOFLOXACIN
     Dates: start: 20170104

REACTIONS (5)
  - Chronic kidney disease [Not Recovered/Not Resolved]
  - Acute kidney injury [Not Recovered/Not Resolved]
  - Renal failure [Unknown]
  - Tubulointerstitial nephritis [Unknown]
  - Rebound acid hypersecretion [Unknown]

NARRATIVE: CASE EVENT DATE: 20060101
